FAERS Safety Report 16106742 (Version 1)
Quarter: 2019Q1

REPORT INFORMATION
  Report Type: Spontaneous
  Country: US (occurrence: US)
  Receive Date: 20190322
  Receipt Date: 20190322
  Transmission Date: 20190418
  Serious: Yes (Life-Threatening, Hospitalization, Other)
  Sender: FDA-Public Use
  Company Number: US-GILEAD-2019-0397311

PATIENT
  Age: 73 Year
  Sex: Male

DRUGS (22)
  1. ACYCLOVIR [ACICLOVIR] [Concomitant]
     Active Substance: ACYCLOVIR
  2. MELATONIN [Concomitant]
     Active Substance: MELATONIN
  3. METHYLPHENIDATE. [Concomitant]
     Active Substance: METHYLPHENIDATE
  4. HYDROCORTISONE. [Concomitant]
     Active Substance: HYDROCORTISONE
  5. YESCARTA [Suspect]
     Active Substance: AXICABTAGENE CILOLEUCEL
     Indication: PRODUCT USED FOR UNKNOWN INDICATION
     Dosage: UNK
     Route: 065
     Dates: start: 20180514
  6. CASPOFUNGIN [Concomitant]
     Active Substance: CASPOFUNGIN
  7. CEFAZOLIN [Concomitant]
     Active Substance: CEFAZOLIN
  8. CEFEPIME [Concomitant]
     Active Substance: CEFEPIME HYDROCHLORIDE
  9. VANCOMYCIN [Concomitant]
     Active Substance: VANCOMYCIN
  10. NOREPINEPHRINE. [Concomitant]
     Active Substance: NOREPINEPHRINE
  11. BACTRIM [Concomitant]
     Active Substance: SULFAMETHOXAZOLE\TRIMETHOPRIM
  12. ALLOPURINOL. [Concomitant]
     Active Substance: ALLOPURINOL
  13. ATOVAQUONE. [Concomitant]
     Active Substance: ATOVAQUONE
  14. POSACONAZOLE [Concomitant]
     Active Substance: POSACONAZOLE
  15. TOCILIZUMAB. [Concomitant]
     Active Substance: TOCILIZUMAB
  16. CYCLOPHOSPHAMIDE. [Concomitant]
     Active Substance: CYCLOPHOSPHAMIDE
  17. DEXAMETHASONE. [Concomitant]
     Active Substance: DEXAMETHASONE
  18. AMIKACIN. [Concomitant]
     Active Substance: AMIKACIN
  19. FLUDARABINE [Concomitant]
     Active Substance: FLUDARABINE PHOSPHATE
  20. LEVETIRACETAM. [Concomitant]
     Active Substance: LEVETIRACETAM
  21. LEVOFLOXACIN. [Concomitant]
     Active Substance: LEVOFLOXACIN
  22. MEROPENEM. [Concomitant]
     Active Substance: MEROPENEM

REACTIONS (8)
  - Neurotoxicity [Unknown]
  - Hypotension [Unknown]
  - Cellulitis [Unknown]
  - Cytokine release syndrome [Unknown]
  - Clostridium difficile infection [Unknown]
  - Cytopenia [Unknown]
  - Cerebellar infarction [Unknown]
  - Staphylococcal bacteraemia [Unknown]

NARRATIVE: CASE EVENT DATE: 2018
